FAERS Safety Report 8844562 (Version 1)
Quarter: 2012Q4

REPORT INFORMATION
  Report Type: Spontaneous
  Country: CA (occurrence: None)
  Receive Date: 20121012
  Receipt Date: 20121012
  Transmission Date: 20130627
  Serious: Yes (Hospitalization, Disabling)
  Sender: FDA-Public Use
  Company Number: 2012AP003246

PATIENT
  Sex: Female

DRUGS (2)
  1. HYDROCHLOROTHIAZIDE [Suspect]
     Indication: DRUG USE FOR UNKNOWN INDICATION
     Route: 048
     Dates: start: 201202, end: 201202
  2. CELEXA /00582602/ (CITALOPRAM HYDROBROMIDE) [Concomitant]

REACTIONS (12)
  - Blood glucose increased [None]
  - Blood urine present [None]
  - Pain [None]
  - Lymphadenopathy [None]
  - Pyrexia [None]
  - Asthenia [None]
  - Depression [None]
  - General physical condition abnormal [None]
  - Pruritus [None]
  - Confusional state [None]
  - Renal impairment [None]
  - Impaired work ability [None]
